FAERS Safety Report 10153633 (Version 1)
Quarter: 2014Q2

REPORT INFORMATION
  Report Type: Spontaneous
  Country: IE (occurrence: IE)
  Receive Date: 20140505
  Receipt Date: 20140505
  Transmission Date: 20141212
  Serious: Yes (Other)
  Sender: FDA-Public Use
  Company Number: IE-ABBVIE-14P-229-1231249-00

PATIENT
  Age: 56 Year
  Sex: Female

DRUGS (2)
  1. HUMIRA [Suspect]
     Indication: COLITIS ULCERATIVE
     Route: 065
  2. HUMIRA [Suspect]
     Indication: COLITIS

REACTIONS (6)
  - Weight decreased [Unknown]
  - Abdominal pain [Unknown]
  - Colitis [Unknown]
  - Pseudopolyp [Unknown]
  - Drug ineffective [Unknown]
  - Disease progression [Unknown]
